FAERS Safety Report 5457288-8 (Version None)
Quarter: 2007Q3

REPORT INFORMATION
  Report Type: 
  Country: None (occurrence: None)
  Receive Date: 20070918
  Receipt Date: 20070702
  Transmission Date: 20080115
  Serious: Yes (Hospitalization, Other)
  Sender: FDA-Public Use
  Company Number: US-ASTRAZENECA-2007UW01969

PATIENT
  Sex: Male
  Weight: 120.5 kg

DRUGS (5)
  1. SEROQUEL [Suspect]
     Indication: BIPOLAR DISORDER
     Dosage: 25-300MG
     Route: 048
     Dates: start: 20010101
  2. SEROQUEL [Suspect]
     Indication: SCHIZOPHRENIA
     Dosage: 25-300MG
     Route: 048
     Dates: start: 20010101
  3. ABILIFY [Concomitant]
     Dosage: 5-15 MG
     Dates: start: 20060716, end: 20061115
  4. CELEX [Concomitant]
     Dates: start: 20010101
  5. LAMICTAL [Concomitant]

REACTIONS (2)
  - DIABETES MELLITUS [None]
  - PANCREATITIS [None]
